APPROVED DRUG PRODUCT: METIPRANOLOL
Active Ingredient: METIPRANOLOL HYDROCHLORIDE
Strength: 0.3%
Dosage Form/Route: SOLUTION/DROPS;OPHTHALMIC
Application: A075720 | Product #001
Applicant: SANDOZ INC
Approved: Aug 6, 2001 | RLD: No | RS: No | Type: DISCN